FAERS Safety Report 7364373-2 (Version None)
Quarter: 2011Q1

REPORT INFORMATION
  Report Type: 
  Country: None (occurrence: None)
  Receive Date: 20110321
  Receipt Date: 20110317
  Transmission Date: 20110831
  Serious: Yes (Other)
  Sender: FDA-Public Use
  Company Number: JP-PFIZER INC-2011059376

PATIENT
  Age: 81 Year
  Sex: Female

DRUGS (1)
  1. LYRICA [Suspect]
     Indication: POST HERPETIC NEURALGIA
     Dosage: 75 MG/DAY
     Route: 048

REACTIONS (6)
  - PSYCHIATRIC SYMPTOM [None]
  - ANXIETY [None]
  - DELIRIUM [None]
  - HALLUCINATION [None]
  - SLEEP DISORDER [None]
  - DISORIENTATION [None]
